FAERS Safety Report 15292175 (Version 6)
Quarter: 2022Q1

REPORT INFORMATION
  Report Type: Spontaneous
  Country: CA (occurrence: CA)
  Receive Date: 20180818
  Receipt Date: 20220301
  Transmission Date: 20220424
  Serious: Yes (Life-Threatening, Hospitalization, Other)
  Sender: FDA-Public Use
  Company Number: None

PATIENT
  Age: 82 Year
  Sex: Female

DRUGS (22)
  1. DULOXETINE [Suspect]
     Active Substance: DULOXETINE
     Indication: Phagophobia
     Dosage: UNK, INITIAL DOSE
     Route: 065
  2. DULOXETINE [Suspect]
     Active Substance: DULOXETINE
     Indication: Choking sensation
     Dosage: 60 MILLIGRAM
     Route: 065
  3. DULOXETINE [Suspect]
     Active Substance: DULOXETINE
     Indication: Dysphagia
  4. MIRTAZAPINE [Suspect]
     Active Substance: MIRTAZAPINE
     Indication: Dysphagia
     Dosage: UNK, INITIAL DOSE
     Route: 065
  5. MIRTAZAPINE [Suspect]
     Active Substance: MIRTAZAPINE
     Indication: Choking sensation
     Dosage: 45 MILLIGRAM
     Route: 065
  6. MIRTAZAPINE [Suspect]
     Active Substance: MIRTAZAPINE
     Indication: Phagophobia
  7. OLANZAPINE [Suspect]
     Active Substance: OLANZAPINE
     Indication: Phagophobia
     Dosage: UNK, INITIAL DOSE
     Route: 065
  8. OLANZAPINE [Suspect]
     Active Substance: OLANZAPINE
     Indication: Dysphagia
     Dosage: 10 MILLIGRAM
     Route: 065
  9. OLANZAPINE [Suspect]
     Active Substance: OLANZAPINE
     Indication: Choking sensation
  10. VENLAFAXINE HYDROCHLORIDE [Suspect]
     Active Substance: VENLAFAXINE HYDROCHLORIDE
     Indication: Choking sensation
     Dosage: UNK
     Route: 065
  11. VENLAFAXINE HYDROCHLORIDE [Suspect]
     Active Substance: VENLAFAXINE HYDROCHLORIDE
     Indication: Phagophobia
  12. VENLAFAXINE HYDROCHLORIDE [Suspect]
     Active Substance: VENLAFAXINE HYDROCHLORIDE
     Indication: Dysphagia
  13. VENLAFAXINE [Suspect]
     Active Substance: VENLAFAXINE HYDROCHLORIDE
     Indication: Choking sensation
     Dosage: UNK
     Route: 005
  14. VENLAFAXINE [Suspect]
     Active Substance: VENLAFAXINE HYDROCHLORIDE
     Indication: Phagophobia
  15. VENLAFAXINE [Suspect]
     Active Substance: VENLAFAXINE HYDROCHLORIDE
     Indication: Dysphagia
  16. LORAZEPAM [Suspect]
     Active Substance: LORAZEPAM
     Indication: Choking sensation
     Dosage: 10 MILLIGRAM
     Route: 065
  17. LORAZEPAM [Suspect]
     Active Substance: LORAZEPAM
     Indication: Phagophobia
     Dosage: UNK
     Route: 065
  18. LORAZEPAM [Suspect]
     Active Substance: LORAZEPAM
     Indication: Dysphagia
  19. RISPERIDONE [Suspect]
     Active Substance: RISPERIDONE
     Indication: Choking sensation
     Dosage: UNK
     Route: 065
  20. RISPERIDONE [Suspect]
     Active Substance: RISPERIDONE
     Indication: Phagophobia
  21. RISPERIDONE [Suspect]
     Active Substance: RISPERIDONE
     Indication: Dysphagia
  22. RISPERIDONE [Suspect]
     Active Substance: RISPERIDONE
     Indication: Anxiety disorder

REACTIONS (6)
  - Tardive dyskinesia [Unknown]
  - Phagophobia [Unknown]
  - Drug resistance [Unknown]
  - Drug ineffective [Recovered/Resolved]
  - Therapeutic product effect incomplete [Unknown]
  - Therapeutic response decreased [Unknown]
